FAERS Safety Report 10458075 (Version 2)
Quarter: 2014Q3

REPORT INFORMATION
  Report Type: Spontaneous
  Country: IT (occurrence: IT)
  Receive Date: 20140917
  Receipt Date: 20140917
  Transmission Date: 20150326
  Serious: Yes (Other)
  Sender: FDA-Public Use
  Company Number: IT-ACCORD-025861

PATIENT
  Sex: Female

DRUGS (1)
  1. CARBIDOPA/LEVODOPA [Suspect]
     Active Substance: CARBIDOPA\LEVODOPA
     Indication: PARKINSON^S DISEASE
     Dosage: 1650 MG L-DOPA EQUIVALENT DOSE

REACTIONS (3)
  - Guillain-Barre syndrome [None]
  - Acute polyneuropathy [Recovering/Resolving]
  - Gastroenteritis [Unknown]
